FAERS Safety Report 6547912-0 (Version None)
Quarter: 2010Q1

REPORT INFORMATION
  Report Type: 
  Country: None (occurrence: None)
  Receive Date: 20100124
  Receipt Date: 20091119
  Transmission Date: 20100710
  Serious: No
  Sender: FDA-Public Use
  Company Number: US-ALEXION-A200900997

PATIENT
  Sex: Male

DRUGS (7)
  1. SOLIRIS [Suspect]
     Indication: PAROXYSMAL NOCTURNAL HAEMOGLOBINURIA
     Dosage: 600 MG, QW X 4
     Route: 042
     Dates: start: 20071010
  2. SOLIRIS [Suspect]
     Dosage: 900 MG, Q2W
     Route: 042
     Dates: start: 20071107
  3. CALCITROL                          /00508501/ [Concomitant]
     Dosage: 0.25 UG, 3 X WEEK
     Route: 048
  4. FOLIC ACID [Concomitant]
     Dosage: 1 MG, QD
     Route: 048
  5. POTASSIUM [Concomitant]
     Dosage: 20 MEQ, BID
     Route: 048
  6. PRILOSEC [Concomitant]
     Dosage: 20 MG, QD
     Route: 048
  7. COLECALCIFEROL [Concomitant]
     Dosage: 1000 UNITS, BID
     Route: 048

REACTIONS (1)
  - HAEMOGLOBIN DECREASED [None]
